FAERS Safety Report 26206905 (Version 1)
Quarter: 2025Q4

REPORT INFORMATION
  Report Type: Spontaneous
  Country: GB (occurrence: GB)
  Receive Date: 20251229
  Receipt Date: 20251229
  Transmission Date: 20260118
  Serious: Yes (Disabling)
  Sender: ALKEM
  Company Number: None

PATIENT
  Age: 59 Year
  Sex: Female
  Weight: 114 kg

DRUGS (5)
  1. SOLIFENACIN [Suspect]
     Active Substance: SOLIFENACIN
     Indication: Ill-defined disorder
     Dosage: UNK (TABLETS)
     Route: 065
     Dates: start: 20250909
  2. CLONAZEPAM [Concomitant]
     Active Substance: CLONAZEPAM
     Indication: Product used for unknown indication
     Dosage: UNK
     Route: 065
  3. NITROFURANTOIN [Concomitant]
     Active Substance: NITROFURANTOIN
     Indication: Product used for unknown indication
     Dosage: UNK
     Route: 065
  4. PREGABALIN [Concomitant]
     Active Substance: PREGABALIN
     Indication: Product used for unknown indication
     Dosage: UNK
     Route: 065
  5. PROPRANOLOL [Concomitant]
     Active Substance: PROPRANOLOL HYDROCHLORIDE
     Indication: Product used for unknown indication
     Dosage: UNK
     Route: 065

REACTIONS (3)
  - Oedema [Recovered/Resolved]
  - Dysuria [Unknown]
  - Oedema peripheral [Unknown]
